FAERS Safety Report 9221002 (Version 1)
Quarter: 2013Q2

REPORT INFORMATION
  Report Type: Report from Study
  Country: CA (occurrence: CA)
  Receive Date: 20130409
  Receipt Date: 20130409
  Transmission Date: 20140414
  Serious: Yes (Other)
  Sender: FDA-Public Use
  Company Number: CA-ROCHE-1211829

PATIENT
  Sex: Male
  Weight: 86.2 kg

DRUGS (6)
  1. RITUXAN [Suspect]
     Indication: DERMATOMYOSITIS
     Route: 042
     Dates: start: 20120109
  2. RITUXAN [Suspect]
     Indication: OFF LABEL USE
  3. PREDNISONE [Concomitant]
     Route: 065
  4. AZATHIOPRINE [Concomitant]
     Route: 065
  5. METFORMIN [Concomitant]
     Route: 065
  6. RABEPRAZOLE [Concomitant]

REACTIONS (1)
  - Polymyositis [Unknown]
